FAERS Safety Report 12732437 (Version 1)
Quarter: 2016Q3

REPORT INFORMATION
  Report Type: Spontaneous
  Country: US (occurrence: US)
  Receive Date: 20160910
  Receipt Date: 20160910
  Transmission Date: 20161109
  Serious: Yes (Disabling)
  Sender: FDA-Public Use
  Company Number: None

PATIENT
  Age: 54 Year
  Sex: Female
  Weight: 60.75 kg

DRUGS (6)
  1. OMEGA3 [Concomitant]
  2. PEPCID AC [Concomitant]
     Active Substance: FAMOTIDINE
  3. CQ10 [Concomitant]
     Active Substance: UBIDECARENONE
  4. LYRICA [Concomitant]
     Active Substance: PREGABALIN
  5. HARVONI [Suspect]
     Active Substance: LEDIPASVIR\SOFOSBUVIR
     Indication: HEPATITIS C
     Route: 048
  6. MULTIVITAMINS [Concomitant]
     Active Substance: VITAMINS

REACTIONS (3)
  - Activities of daily living impaired [None]
  - Pain in extremity [None]
  - Neuralgia [None]
